FAERS Safety Report 6263075-3 (Version None)
Quarter: 2009Q3

REPORT INFORMATION
  Report Type: 
  Country: None (occurrence: None)
  Receive Date: 20090708
  Receipt Date: 20090708
  Transmission Date: 20100115
  Serious: Yes (Disabling)
  Sender: FDA-Public Use
  Company Number: None

PATIENT
  Sex: Female
  Weight: 68.0396 kg

DRUGS (1)
  1. ACTONEL [Suspect]
     Indication: BONE DISORDER
     Dosage: 35/MG ONCE A WK 1/WK
     Dates: start: 20070301, end: 20090601

REACTIONS (7)
  - DYSPHAGIA [None]
  - INSOMNIA [None]
  - MUSCULOSKELETAL DISCOMFORT [None]
  - PAIN IN EXTREMITY [None]
  - PHOTOPHOBIA [None]
  - TOOTH ABSCESS [None]
  - WITHDRAWAL SYNDROME [None]
